FAERS Safety Report 10490335 (Version 17)
Quarter: 2022Q3

REPORT INFORMATION
  Report Type: Report from Study
  Country: DE (occurrence: DE)
  Receive Date: 20141002
  Receipt Date: 20220329
  Transmission Date: 20221026
  Serious: Yes (Hospitalization, Other)
  Sender: FDA-Public Use
  Company Number: DE-002147023-PHHY2014DE124405

PATIENT

DRUGS (20)
  1. RUXOLITINIB [Suspect]
     Active Substance: RUXOLITINIB
     Indication: Primary myelofibrosis
     Dosage: 20 MG, QD (5 MG, 4 DF PER DAY)
     Route: 048
     Dates: start: 20140818, end: 20140930
  2. RUXOLITINIB [Suspect]
     Active Substance: RUXOLITINIB
     Dosage: 2 DF A 10 MG AND 2 DF A 5 MG, ALTERNATELY EVERY OTHER DAY
     Route: 048
     Dates: start: 20140930
  3. ASPIRIN [Concomitant]
     Active Substance: ASPIRIN
     Indication: Prophylaxis
     Dosage: 100 MG, QD
     Route: 065
     Dates: start: 20140926, end: 20140930
  4. RAMIPRIL [Concomitant]
     Active Substance: RAMIPRIL
     Indication: Hypertension
     Dosage: 2.5 MG, QD
     Route: 065
     Dates: start: 20120101, end: 20160101
  5. PREDNISOLONE [Concomitant]
     Active Substance: PREDNISOLONE
     Indication: Myelofibrosis
     Dosage: 7.5 MG, QD
     Route: 065
     Dates: start: 20120101, end: 20160104
  6. PANTOPRAZOLE [Concomitant]
     Active Substance: PANTOPRAZOLE
     Indication: Abdominal pain upper
     Dosage: 40 MG, QD
     Route: 065
     Dates: start: 20100101
  7. TIOTROPIUM BROMIDE [Concomitant]
     Active Substance: TIOTROPIUM BROMIDE
     Indication: Chronic obstructive pulmonary disease
     Dosage: 18 UG, QD
     Route: 065
     Dates: start: 20120101, end: 20160104
  8. FLUTICASONE PROPIONATE\SALMETEROL XINAFOATE [Concomitant]
     Active Substance: FLUTICASONE PROPIONATE\SALMETEROL XINAFOATE
     Indication: Chronic obstructive pulmonary disease
     Dosage: 1 DF (FLUTICASONE 250, SALMETEROL 50), UNK
     Route: 065
     Dates: start: 20120101, end: 20160104
  9. METAMIZOLE [Concomitant]
     Active Substance: METAMIZOLE
     Indication: Pain
     Dosage: 80 OT, QD
     Route: 065
     Dates: start: 20140101, end: 20160104
  10. MORPHINE [Concomitant]
     Active Substance: MORPHINE
     Indication: Pain
     Dosage: 60 OT, QD
     Route: 065
     Dates: start: 20140101, end: 20160104
  11. SULFAMETHOXAZOLE\TRIMETHOPRIM [Concomitant]
     Active Substance: SULFAMETHOXAZOLE\TRIMETHOPRIM
     Indication: Product used for unknown indication
     Dosage: 1 DF (240/5 ML), PER DAY
     Route: 065
     Dates: start: 20140101, end: 20160104
  12. HYDROCHLOROTHIAZIDE [Concomitant]
     Active Substance: HYDROCHLOROTHIAZIDE
     Indication: Renal failure
     Dosage: 12.5 MG, QD
     Route: 065
     Dates: start: 20120101, end: 20160104
  13. NEBIVOLOL [Concomitant]
     Active Substance: NEBIVOLOL
     Indication: Hypertension
     Dosage: 10 MG, QD
     Route: 065
     Dates: start: 20021028, end: 20160101
  14. SIMVASTATIN [Concomitant]
     Active Substance: SIMVASTATIN
     Indication: Cardiac failure
     Dosage: 20 MG, QD
     Route: 065
     Dates: start: 20100101, end: 20160104
  15. ALLOPURINOL [Concomitant]
     Active Substance: ALLOPURINOL
     Indication: Blood uric acid increased
     Dosage: 300 OT, QD
     Route: 065
     Dates: start: 20150812
  16. FLECAINIDE [Concomitant]
     Active Substance: FLECAINIDE
     Indication: Atrial fibrillation
     Dosage: 100 MG, QD
     Route: 065
     Dates: start: 20090101, end: 20160104
  17. CALCIUM\CHOLECALCIFEROL [Concomitant]
     Active Substance: CALCIUM\CHOLECALCIFEROL
     Indication: Product used for unknown indication
     Dosage: CALCIUM 0.5G + COLECALCIFEROL 400IU
     Route: 065
     Dates: start: 20120101, end: 20160104
  18. ENOXAPARIN [Concomitant]
     Active Substance: ENOXAPARIN
     Indication: Atrial fibrillation
     Dosage: 80 MG, QD
     Route: 065
     Dates: start: 20080101, end: 20141203
  19. FOLIC ACID [Concomitant]
     Active Substance: FOLIC ACID
     Indication: Folate deficiency
     Dosage: 5 MG, QD
     Route: 065
     Dates: start: 20140813, end: 20160104
  20. LEVETIRACETAM [Concomitant]
     Active Substance: LEVETIRACETAM
     Indication: Epilepsy
     Dosage: 1000 OT, QD
     Route: 065
     Dates: start: 20160104

REACTIONS (16)
  - Subdural haematoma [Recovered/Resolved]
  - Haemoglobin decreased [Recovered/Resolved]
  - Diarrhoea [Unknown]
  - Dehydration [Recovered/Resolved]
  - Pyrexia [Recovered/Resolved]
  - Pyrexia [Recovered/Resolved]
  - Hypokalaemia [Recovered/Resolved]
  - Infection [Recovered/Resolved]
  - Post procedural haemorrhage [Recovered/Resolved]
  - General physical health deterioration [Recovered/Resolved]
  - Retroperitoneal haematoma [Recovered/Resolved]
  - Seizure [Recovered/Resolved]
  - Haematoma [Recovering/Resolving]
  - Fall [Not Recovered/Not Resolved]
  - Skull fracture [Not Recovered/Not Resolved]
  - Muscular weakness [Recovering/Resolving]

NARRATIVE: CASE EVENT DATE: 20140901
